FAERS Safety Report 8372792-0 (Version None)
Quarter: 2012Q2

REPORT INFORMATION
  Report Type: 
  Country: None (occurrence: None)
  Receive Date: 20120521
  Receipt Date: 20120516
  Transmission Date: 20120825
  Serious: Yes (Other)
  Sender: FDA-Public Use
  Company Number: IT-PFIZER INC-2012119927

PATIENT
  Age: 85 Year
  Sex: Male

DRUGS (5)
  1. PANTOPRAZOLE [Concomitant]
     Dosage: 20 MG, UNK
     Route: 048
  2. ALTIAZEM [Concomitant]
     Dosage: 180 MG, UNK
     Route: 048
  3. ATORVASTATIN CALCIUM [Suspect]
     Indication: MYOCARDIAL INFARCTION
     Dosage: 40 MG DAILY
     Route: 048
     Dates: start: 20120420, end: 20120506
  4. PLAVIX [Suspect]
     Indication: MYOCARDIAL INFARCTION
     Dosage: 75 MG DAILY
     Route: 048
     Dates: start: 20120420, end: 20120507
  5. ALLOPURINOL [Concomitant]
     Dosage: 300 MG, UNK
     Route: 048

REACTIONS (2)
  - URTICARIA [None]
  - DERMATITIS EXFOLIATIVE [None]
